FAERS Safety Report 4382306-8 (Version None)
Quarter: 2004Q2

REPORT INFORMATION
  Report Type: 
  Country: None (occurrence: None)
  Receive Date: 20040622
  Receipt Date: 20040611
  Transmission Date: 20050107
  Serious: Yes (Hospitalization)
  Sender: FDA-Public Use
  Company Number: US-BRISTOL-MYERS SQUIBB COMPANY-12613121

PATIENT
  Sex: Male

DRUGS (1)
  1. KENALOG [Suspect]
     Dosage: INJECTED INTO PATIENT'S BACK
     Route: 051

REACTIONS (1)
  - METAL POISONING [None]
